FAERS Safety Report 5874512-8 (Version None)
Quarter: 2008Q3

REPORT INFORMATION
  Report Type: 
  Country: None (occurrence: None)
  Receive Date: 20080909
  Receipt Date: 20080828
  Transmission Date: 20090109
  Serious: Yes (Hospitalization)
  Sender: FDA-Public Use
  Company Number: PHHO2008TW09965

PATIENT
  Sex: Male
  Weight: 52 kg

DRUGS (5)
  1. LUCENTIS O-LUC+INJ [Suspect]
     Indication: MACULAR DEGENERATION
     Dosage: UNK
     Dates: start: 20071112
  2. HYDERGINE [Suspect]
     Indication: DIZZINESS
     Dosage: 1.5 MG, BID
     Route: 048
     Dates: start: 20080704
  3. QUETIAPINE [Suspect]
     Indication: DIZZINESS
     Dosage: 25 MG, UNK
     Route: 048
     Dates: start: 20080704
  4. LORAZEPAM [Suspect]
     Indication: DIZZINESS
     Dosage: 0.5 MG, UNK
     Dates: start: 20080704
  5. SERETIDE [Suspect]
     Indication: CHRONIC OBSTRUCTIVE PULMONARY DISEASE
     Dosage: 1 PUFF, BID
     Dates: start: 20080215

REACTIONS (2)
  - DIZZINESS [None]
  - HYPERTENSION [None]
